FAERS Safety Report 18559577 (Version 4)
Quarter: 2021Q3

REPORT INFORMATION
  Report Type: Spontaneous
  Country: US (occurrence: US)
  Receive Date: 20201130
  Receipt Date: 20210825
  Transmission Date: 20211014
  Serious: Yes (Other)
  Sender: FDA-Public Use
  Company Number: US-PFIZER INC-2020465462

PATIENT
  Age: 68 Year
  Sex: Female
  Weight: 79 kg

DRUGS (3)
  1. SYNTHROID [Concomitant]
     Active Substance: LEVOTHYROXINE SODIUM
     Dosage: UNK, 1X/DAY (0.125 UNKNOWN UNITS, ONCE A DAY)
  2. IBRANCE [Suspect]
     Active Substance: PALBOCICLIB
     Indication: BREAST CANCER FEMALE
     Dosage: 125 MG, CYCLIC (125MG FOR 21 DAYS AND THEN OFF FOR ONE WEEK)
     Dates: start: 2020
  3. ANASTROZOLE. [Suspect]
     Active Substance: ANASTROZOLE
     Indication: BREAST CANCER FEMALE
     Dosage: 1 MG, 1X/DAY (TAKES IT IN THE MORNING)

REACTIONS (11)
  - Dysentery [Unknown]
  - Abdominal discomfort [Unknown]
  - Aphthous ulcer [Unknown]
  - Nausea [Unknown]
  - Diarrhoea [Recovered/Resolved]
  - Feeling cold [Unknown]
  - Vomiting [Unknown]
  - Nasopharyngitis [Unknown]
  - Constipation [Unknown]
  - Back pain [Unknown]
  - Product dose omission issue [Unknown]
